FAERS Safety Report 12337153 (Version 2)
Quarter: 2020Q3

REPORT INFORMATION
  Report Type: Other
  Country: DE (occurrence: DE)
  Receive Date: 20160505
  Receipt Date: 20200901
  Transmission Date: 20201102
  Serious: Yes (Other)
  Sender: FDA-Public Use
  Company Number: DE-ROCHE-1752022

PATIENT

DRUGS (7)
  1. CISPLATIN. [Suspect]
     Active Substance: CISPLATIN
     Indication: DIFFUSE LARGE B-CELL LYMPHOMA
     Dosage: DAYS 1 TO 4 AS 3 HOUR INFUSION
     Route: 042
  2. GRANISETRON HYDROCHLORIDE. [Concomitant]
     Active Substance: GRANISETRON HYDROCHLORIDE
     Dosage: DAYS 1 TO 4
  3. APREPITANT. [Concomitant]
     Active Substance: APREPITANT
     Dosage: DAY 1 TO 6
  4. RITUXIMAB. [Suspect]
     Active Substance: RITUXIMAB
     Indication: DIFFUSE LARGE B-CELL LYMPHOMA
     Dosage: ON DAY 1
     Route: 042
  5. DEXAMETHASONE. [Suspect]
     Active Substance: DEXAMETHASONE
     Indication: DIFFUSE LARGE B-CELL LYMPHOMA
     Dosage: FOR 4 CONSECUTIVE DAYS
     Route: 048
  6. APREPITANT. [Concomitant]
     Active Substance: APREPITANT
     Dosage: DAY 1
  7. CYTARABINE. [Suspect]
     Active Substance: CYTARABINE
     Indication: DIFFUSE LARGE B-CELL LYMPHOMA
     Dosage: DOSE: 2 G/M2 ON DAY 2 AS A 3 HOUR INFUSION AND REPEATED AFTER 12 HOURS.
     Route: 042

REACTIONS (1)
  - Nephropathy toxic [Unknown]
